FAERS Safety Report 22588211 (Version 1)
Quarter: 2023Q2

REPORT INFORMATION
  Report Type: Spontaneous
  Country: US (occurrence: US)
  Receive Date: 20230612
  Receipt Date: 20230612
  Transmission Date: 20230722
  Serious: Yes (Death)
  Sender: FDA-Public Use
  Company Number: US-CTI BIOPHARMA-2023US03707

PATIENT

DRUGS (15)
  1. VONJO [Suspect]
     Active Substance: PACRITINIB
     Indication: Myelofibrosis
     Dosage: 200 MG, BID
     Route: 048
     Dates: start: 20230303
  2. ALLOPURINOL [Concomitant]
     Active Substance: ALLOPURINOL
  3. BENZONATATE [Concomitant]
     Active Substance: BENZONATATE
  4. DIGOXIN [Concomitant]
     Active Substance: DIGOXIN
  5. DOXYCYCLINE HYCLATE [Concomitant]
     Active Substance: DOXYCYCLINE HYCLATE
  6. IMODIUM [Concomitant]
     Active Substance: LOPERAMIDE HYDROCHLORIDE
  7. LEVEMIR [Concomitant]
     Active Substance: INSULIN DETEMIR
  8. METOLAZONE [Concomitant]
     Active Substance: METOLAZONE
  9. METOPROLOL SUCCINATE [Concomitant]
     Active Substance: METOPROLOL SUCCINATE
  10. METROCREAM [Concomitant]
     Active Substance: METRONIDAZOLE
  11. OPSUMIT [Concomitant]
     Active Substance: MACITENTAN
  12. SILDENAFIL [Concomitant]
     Active Substance: SILDENAFIL
  13. SYNTHROID [Concomitant]
     Active Substance: LEVOTHYROXINE SODIUM
  14. TORSEMIDE [Concomitant]
     Active Substance: TORSEMIDE
  15. TYVASO [Concomitant]
     Active Substance: TREPROSTINIL

REACTIONS (1)
  - Death [Fatal]

NARRATIVE: CASE EVENT DATE: 20230101
